FAERS Safety Report 6386463-3 (Version None)
Quarter: 2009Q4

REPORT INFORMATION
  Report Type: 
  Country: None (occurrence: None)
  Receive Date: 20091002
  Receipt Date: 20090521
  Transmission Date: 20100525
  Serious: No
  Sender: FDA-Public Use
  Company Number: US-ASTRAZENECA-2009UW13154

PATIENT
  Sex: Female
  Weight: 68 kg

DRUGS (9)
  1. ARIMIDEX [Suspect]
     Route: 048
  2. ARICEPT [Concomitant]
  3. ZETIA [Concomitant]
  4. PRAVASTATIN [Concomitant]
  5. PAXIL [Concomitant]
  6. CALCIUM [Concomitant]
  7. MULTI-VITAMIN [Concomitant]
  8. VITAMIN B-12 [Concomitant]
  9. PRAVACHOL [Concomitant]

REACTIONS (2)
  - HOT FLUSH [None]
  - WEIGHT INCREASED [None]
